FAERS Safety Report 14709899 (Version 1)
Quarter: 2018Q2

REPORT INFORMATION
  Report Type: Other
  Country: IT (occurrence: IT)
  Receive Date: 20180403
  Receipt Date: 20180403
  Transmission Date: 20180711
  Serious: Yes (Hospitalization)
  Sender: FDA-Public Use
  Company Number: IT-CELLTRION INC.-2018IT018975

PATIENT

DRUGS (1)
  1. INFLECTRA [Suspect]
     Active Substance: INFLIXIMAB-DYYB
     Indication: PSORIATIC ARTHROPATHY
     Dosage: 1 DF, WEEKLY
     Route: 042
     Dates: start: 20150101, end: 20180101

REACTIONS (3)
  - Product use issue [Unknown]
  - Bladder spasm [Unknown]
  - Prostate cancer [Unknown]
